FAERS Safety Report 9885936 (Version 1)
Quarter: 2013Q4

REPORT INFORMATION
  Report Type: Spontaneous
  Country: US (occurrence: None)
  Receive Date: 20131223
  Receipt Date: 20131223
  Transmission Date: 20140711
  Serious: Yes (Other)
  Sender: FDA-Public Use
  Company Number: 221617

PATIENT
  Age: 48 Year
  Sex: Female

DRUGS (1)
  1. PICATO GEL [Suspect]
     Indication: ACTINIC KERATOSIS
     Dosage: DERMAL
     Dates: start: 20130512, end: 20130513

REACTIONS (6)
  - Corneal abrasion [None]
  - Eye irritation [None]
  - Accidental exposure to product [None]
  - Drug administered at inappropriate site [None]
  - Incorrect drug administration duration [None]
  - Incorrect route of drug administration [None]
